FAERS Safety Report 15543205 (Version 1)
Quarter: 2018Q4

REPORT INFORMATION
  Report Type: Spontaneous
  Country: ES (occurrence: ES)
  Receive Date: 20181023
  Receipt Date: 20181023
  Transmission Date: 20190205
  Serious: Yes (Other)
  Sender: FDA-Public Use
  Company Number: ES-PFM-2018-12693

PATIENT

DRUGS (2)
  1. VINORELBINE [Suspect]
     Active Substance: VINORELBINE\VINORELBINE TARTRATE
     Indication: PRODUCT USED FOR UNKNOWN INDICATION
     Dosage: UNK; 4 CYCLES
     Route: 065
     Dates: start: 20171113
  2. CISPLATIN. [Suspect]
     Active Substance: CISPLATIN
     Indication: PRODUCT USED FOR UNKNOWN INDICATION
     Dosage: UNK; (4 CYCLES)
     Route: 065
     Dates: start: 20171113

REACTIONS (1)
  - Ascites [Recovered/Resolved]
